FAERS Safety Report 6068212-1 (Version None)
Quarter: 2009Q1

REPORT INFORMATION
  Report Type: 
  Country: None (occurrence: None)
  Receive Date: 20090206
  Receipt Date: 20090123
  Transmission Date: 20090719
  Serious: Yes (Hospitalization)
  Sender: FDA-Public Use
  Company Number: JP-ABBOTT-08P-087-0459030-00

PATIENT
  Age: 74 Year
  Sex: Male

DRUGS (9)
  1. LEUPROLIDE ACETATE [Suspect]
     Indication: PROSTATE CANCER STAGE III
     Route: 058
     Dates: start: 20060928, end: 20080228
  2. LEUPROLIDE ACETATE [Suspect]
     Dates: start: 20060831, end: 20060928
  3. CASODEX [Concomitant]
     Indication: PROSTATE CANCER
     Route: 048
  4. NORVASC [Concomitant]
     Indication: HYPERTENSION
     Route: 048
  5. DIOVAN [Concomitant]
     Indication: HYPERTENSION
     Route: 048
  6. CARDENALIN [Concomitant]
     Indication: HYPERTENSION
     Route: 048
  7. CLARITHROMYCIN [Concomitant]
     Indication: LUNG NEOPLASM MALIGNANT
     Route: 048
     Dates: start: 20070704, end: 20070717
  8. MUCOSOLVAN [Concomitant]
     Indication: LUNG NEOPLASM MALIGNANT
     Route: 048
     Dates: start: 20070704, end: 20080121
  9. HUSTAZOL [Concomitant]
     Indication: LUNG NEOPLASM MALIGNANT
     Route: 048
     Dates: start: 20070704, end: 20080121

REACTIONS (1)
  - LUNG NEOPLASM MALIGNANT [None]
